FAERS Safety Report 7610707-0 (Version None)
Quarter: 2011Q3

REPORT INFORMATION
  Report Type: 
  Country: None (occurrence: None)
  Receive Date: 20110715
  Receipt Date: 20110709
  Transmission Date: 20111222
  Serious: Yes (Other)
  Sender: FDA-Public Use
  Company Number: CA-PFIZER INC-2011155942

PATIENT
  Sex: Male

DRUGS (1)
  1. IBUPROFEN [Suspect]
     Route: 048

REACTIONS (3)
  - FOREIGN BODY [None]
  - DYSPHAGIA [None]
  - OESOPHAGEAL SPASM [None]
